FAERS Safety Report 9406231 (Version 1)
Quarter: 2013Q3

REPORT INFORMATION
  Report Type: Spontaneous
  Country: US (occurrence: US)
  Receive Date: 20130717
  Receipt Date: 20130717
  Transmission Date: 20140515
  Serious: No
  Sender: FDA-Public Use
  Company Number: US-BAUSCH-BL-2012-001556

PATIENT
  Age: 44 Year
  Sex: Male

DRUGS (1)
  1. BESIVANCE (BESIFLOXACIN OPHTHALMIC SUSPENSION) 0.6% [Suspect]
     Indication: CONJUNCTIVITIS BACTERIAL
     Dosage: ONE DROP IN EACH EYE THREE TIMES DAILY
     Route: 047
     Dates: start: 20120816, end: 20120823

REACTIONS (1)
  - Dry eye [Recovered/Resolved]
